FAERS Safety Report 6358621-5 (Version None)
Quarter: 2009Q3

REPORT INFORMATION
  Report Type: 
  Country: None (occurrence: None)
  Receive Date: 20090914
  Receipt Date: 20090828
  Transmission Date: 20100115
  Serious: Yes (Death, Other)
  Sender: FDA-Public Use
  Company Number: AUR-APL-2009-00527

PATIENT
  Age: 50 Year
  Sex: Male

DRUGS (3)
  1. RISPERIDONE [Suspect]
  2. SALICYLATE [Suspect]
  3. LITHIUM [Suspect]

REACTIONS (1)
  - OVERDOSE [None]
